FAERS Safety Report 18123161 (Version 1)
Quarter: 2020Q3

REPORT INFORMATION
  Report Type: Spontaneous
  Country: GB (occurrence: GB)
  Receive Date: 20200807
  Receipt Date: 20200807
  Transmission Date: 20201103
  Serious: Yes (Other)
  Sender: FDA-Public Use
  Company Number: GB-TEVA-2020-GB-1810172

PATIENT
  Age: 74 Year
  Sex: Female

DRUGS (13)
  1. CLOPIDOGREL [Suspect]
     Active Substance: CLOPIDOGREL BISULFATE
     Route: 065
  2. VENTOLIN [Concomitant]
     Active Substance: ALBUTEROL SULFATE
  3. NICORANDIL [Concomitant]
     Active Substance: NICORANDIL
  4. LANSOPRAZOLE. [Concomitant]
     Active Substance: LANSOPRAZOLE
  5. DOCUSATE [Concomitant]
     Active Substance: DOCUSATE
  6. MONOMIL XL [Concomitant]
     Active Substance: ISOSORBIDE MONONITRATE
  7. BACLOFEN. [Concomitant]
     Active Substance: BACLOFEN
  8. FOSTAIR [Concomitant]
     Active Substance: BECLOMETHASONE\FORMOTEROL
     Dosage: 100MICROGRAMS/DOSE / 6MICROGRAMS/DOSE
  9. MIRTAZAPINE. [Concomitant]
     Active Substance: MIRTAZAPINE
  10. RISPERIDONE. [Concomitant]
     Active Substance: RISPERIDONE
  11. CARBOCISTEINE [Concomitant]
     Active Substance: CARBOCYSTEINE
  12. ADCAL?D3 [Concomitant]
     Active Substance: CALCIUM CARBONATE\CHOLECALCIFEROL
  13. ATORVASTATIN [Concomitant]
     Active Substance: ATORVASTATIN

REACTIONS (2)
  - Rectal haemorrhage [Unknown]
  - Upper gastrointestinal haemorrhage [Recovered/Resolved]
